FAERS Safety Report 15121937 (Version 3)
Quarter: 2019Q4

REPORT INFORMATION
  Report Type: Spontaneous
  Country: FR (occurrence: FR)
  Receive Date: 20180709
  Receipt Date: 20191205
  Transmission Date: 20200122
  Serious: Yes (Other)
  Sender: FDA-Public Use
  Company Number: FR-ALLERGAN-1834320US

PATIENT
  Sex: Male

DRUGS (6)
  1. MESALAZINE UNK [Suspect]
     Active Substance: MESALAMINE
     Indication: COLITIS ULCERATIVE
     Dosage: 2 G, QD
     Dates: start: 201609
  2. RITUXIMAB. [Suspect]
     Active Substance: RITUXIMAB
     Indication: LYMPHADENOPATHY
     Dosage: 375 MG/M2 (1 INJECTION EVERY 2 MONTHS)
     Route: 058
     Dates: start: 201506, end: 201512
  3. MESALAZINE UNK [Suspect]
     Active Substance: MESALAMINE
     Indication: KAPOSI^S SARCOMA
  4. RITUXIMAB. [Suspect]
     Active Substance: RITUXIMAB
     Indication: B-CELL LYMPHOMA
     Dosage: 375 MG/M2 (1 INJECTION EVERY 2 MONTHS)
     Route: 058
     Dates: start: 201512, end: 201610
  5. BENDAMUSTINE [Suspect]
     Active Substance: BENDAMUSTINE
     Indication: B-CELL LYMPHOMA
  6. BENDAMUSTINE [Suspect]
     Active Substance: BENDAMUSTINE
     Indication: LYMPHADENOPATHY
     Dosage: 90 MG/M2MG (MILLIGRAM PER SQUARE METRE), SIX MONTHLY CYCLES
     Dates: start: 201506

REACTIONS (3)
  - Acute lung injury [Unknown]
  - Incorrect dose administered [Unknown]
  - Product prescribing error [Unknown]
